FAERS Safety Report 7834560-5 (Version None)
Quarter: 2011Q4

REPORT INFORMATION
  Report Type: 
  Country: None (occurrence: None)
  Receive Date: 20111024
  Receipt Date: 20111018
  Transmission Date: 20120403
  Serious: Yes (Hospitalization, Other)
  Sender: FDA-Public Use
  Company Number: CA-MERCK-0809CAN00002

PATIENT
  Age: 44 Year
  Sex: Male

DRUGS (15)
  1. QUETIAPINE FUMARATE [Suspect]
     Indication: DEPRESSION
     Route: 065
     Dates: end: 20070730
  2. RISPERIDONE [Suspect]
     Indication: DEPRESSION
     Route: 065
     Dates: end: 20070729
  3. ISENTRESS [Suspect]
     Indication: HIV INFECTION
     Route: 048
     Dates: start: 20070626
  4. TENOFOVIR [Concomitant]
     Indication: HIV INFECTION
     Route: 065
  5. RITONAVIR [Suspect]
     Indication: HIV INFECTION
     Route: 065
  6. ENFUVIRTIDE [Concomitant]
     Indication: HIV INFECTION
     Route: 065
     Dates: end: 20070626
  7. BUPROPION HYDROCHLORIDE [Suspect]
     Route: 065
     Dates: start: 20070730
  8. EMTRIVA [Concomitant]
     Indication: HIV INFECTION
     Route: 065
  9. CITALOPRAM [Suspect]
     Indication: DEPRESSION
     Route: 065
  10. EFAVIRENZ [Suspect]
     Indication: HIV INFECTION
     Route: 065
     Dates: start: 20060602, end: 20070522
  11. RISPERIDONE [Suspect]
     Route: 065
     Dates: start: 20070730
  12. CLONAZEPAM [Suspect]
     Indication: DEPRESSION
     Route: 065
     Dates: end: 20070729
  13. ATAZANAVIR [Suspect]
     Indication: HIV INFECTION
     Route: 065
  14. BUPROPION HCL [Suspect]
     Indication: DEPRESSION
     Route: 065
     Dates: end: 20070729
  15. CLONAZEPAM [Suspect]
     Route: 065
     Dates: start: 20070730

REACTIONS (10)
  - DEPRESSION [None]
  - PSYCHOMOTOR SKILLS IMPAIRED [None]
  - DEPRESSIVE SYMPTOM [None]
  - DEPRESSION SUICIDAL [None]
  - ANXIETY [None]
  - DRUG INTERACTION [None]
  - PARANOID PERSONALITY DISORDER [None]
  - SUICIDAL IDEATION [None]
  - TEARFULNESS [None]
  - PSYCHOTIC DISORDER [None]
